FAERS Safety Report 17792355 (Version 2)
Quarter: 2020Q2

REPORT INFORMATION
  Report Type: Spontaneous
  Country: MA (occurrence: MA)
  Receive Date: 20200515
  Receipt Date: 20200526
  Transmission Date: 20200714
  Serious: Yes (Other)
  Sender: FDA-Public Use
  Company Number: MA-PFIZER INC-2020195062

PATIENT
  Age: 62 Year
  Sex: Female

DRUGS (1)
  1. PALBOCICLIB [Suspect]
     Active Substance: PALBOCICLIB
     Indication: BREAST CANCER METASTATIC

REACTIONS (2)
  - Lymphadenopathy [Unknown]
  - Jugular vein thrombosis [Unknown]
